FAERS Safety Report 6978478-9 (Version None)
Quarter: 2010Q3

REPORT INFORMATION
  Report Type: 
  Country: None (occurrence: None)
  Receive Date: 20100913
  Receipt Date: 20100825
  Transmission Date: 20110219
  Serious: Yes (Other)
  Sender: FDA-Public Use
  Company Number: BR-BAYER-201018375LA

PATIENT
  Age: 42 Year
  Sex: Male

DRUGS (4)
  1. BETAFERON [Suspect]
     Indication: MULTIPLE SCLEROSIS
     Dosage: BETAJECT
     Route: 058
     Dates: start: 20070222
  2. ALPRAZOLAM [Concomitant]
     Indication: SEDATIVE THERAPY
     Route: 048
     Dates: start: 20030101
  3. SERTRALINE HYDROCHLORIDE [Concomitant]
     Indication: ANTIDEPRESSANT THERAPY
     Dosage: TOTAL DAILY DOSE: 50 MG
     Route: 048
     Dates: start: 20060101
  4. ACETAMINOPHEN [Concomitant]
     Indication: PREMEDICATION
     Dosage: 1 TAB 30 MINUTES BEFORE BETAFERON AND 6 HOURS AFTER BETAFERON
     Route: 048
     Dates: start: 20070201

REACTIONS (2)
  - EXTREMITY NECROSIS [None]
  - NODULE [None]
